FAERS Safety Report 22220529 (Version 1)
Quarter: 2023Q2

REPORT INFORMATION
  Report Type: Spontaneous
  Country: US (occurrence: US)
  Receive Date: 20230417
  Receipt Date: 20230417
  Transmission Date: 20230721
  Serious: Yes (Other)
  Sender: FDA-Public Use
  Company Number: US-BRISTOL-MYERS SQUIBB COMPANY-2023-054245

PATIENT
  Sex: Female
  Weight: 122.5 kg

DRUGS (2)
  1. ELIQUIS [Suspect]
     Active Substance: APIXABAN
     Indication: Pulmonary embolism
     Dosage: DOSE : 5 MG;     FREQ : BID
     Route: 048
     Dates: start: 202210
  2. NYSTATIN [Concomitant]
     Active Substance: NYSTATIN
     Indication: Blood cholesterol increased

REACTIONS (3)
  - Device related infection [Unknown]
  - Impaired healing [Recovered/Resolved]
  - Contusion [Unknown]
